FAERS Safety Report 12254729 (Version 1)
Quarter: 2016Q2

REPORT INFORMATION
  Report Type: Spontaneous
  Country: JP (occurrence: JP)
  Receive Date: 20160411
  Receipt Date: 20160411
  Transmission Date: 20160815
  Serious: Yes (Disabling)
  Sender: FDA-Public Use
  Company Number: JP-MALLINCKRODT-T201601183

PATIENT
  Age: 65 Year
  Sex: Male
  Weight: 43 kg

DRUGS (20)
  1. BFLUID [Concomitant]
     Active Substance: AMINO ACIDS\DEXTROSE\ELECTROLYTES NOS\VITAMINS
     Dosage: 500 ML
     Route: 051
     Dates: start: 20151027
  2. OXIFAST [Concomitant]
     Active Substance: OXYCODONE
     Dosage: 72 MG
     Route: 051
     Dates: start: 20151101
  3. GLUCOSE [Concomitant]
     Active Substance: DEXTROSE
     Dosage: 50ML
     Route: 051
     Dates: start: 20151025
  4. ELEJECT [Concomitant]
     Dosage: 1 DF
     Route: 051
     Dates: start: 20151027
  5. GLUCOSE [Concomitant]
     Active Substance: DEXTROSE
     Dosage: 100 ML, 50 ML
     Route: 051
     Dates: start: 20151026
  6. SULBACILLIN [Concomitant]
     Active Substance: AMPICILLIN SODIUM\SULBACTAM SODIUM
     Dosage: 6 G, 1.5 G
     Route: 051
     Dates: start: 20151024, end: 20151104
  7. DAIMEDIN MULTI [Concomitant]
     Dosage: 1 DF
     Route: 051
     Dates: start: 20151027
  8. PANTHENYL [Concomitant]
     Dosage: 1500 MG
     Route: 051
     Dates: start: 20151028
  9. METHADONE [Suspect]
     Active Substance: METHADONE HYDROCHLORIDE
     Indication: CANCER PAIN
     Dosage: 5MG (DAILY DOSE 5 MG)
     Route: 048
     Dates: start: 20151028, end: 20151102
  10. HEPARIN SODIUM. [Concomitant]
     Active Substance: HEPARIN SODIUM
     Dosage: 2000 IU
     Route: 051
     Dates: start: 20151027
  11. INTRALIPOS [Concomitant]
     Active Substance: SOYBEAN OIL
     Dosage: 100 ML
     Route: 051
     Dates: start: 20151029
  12. ACELIO [Concomitant]
     Active Substance: ACETAMINOPHEN
     Indication: ANALGESIC THERAPY
     Dosage: 1500 MG
     Route: 051
     Dates: start: 20151026
  13. OXIFAST [Concomitant]
     Active Substance: OXYCODONE
     Indication: ANALGESIC THERAPY
     Dosage: 2 MG, PRN
     Route: 051
     Dates: start: 20151027
  14. OXIFAST [Concomitant]
     Active Substance: OXYCODONE
     Dosage: 48 MG
     Route: 051
     Dates: start: 20151029, end: 20151101
  15. GLUCOSE [Concomitant]
     Active Substance: DEXTROSE
     Dosage: 200 ML, 50 ML
     Route: 051
     Dates: start: 20151024, end: 20151031
  16. SERENACE [Concomitant]
     Active Substance: HALOPERIDOL
     Dosage: 5 MG
     Route: 051
     Dates: start: 20151025, end: 20151025
  17. SERENACE [Concomitant]
     Active Substance: HALOPERIDOL
     Dosage: 10 MG, 5 MG
     Route: 051
     Dates: start: 20151026
  18. ROHYPNOL [Concomitant]
     Active Substance: FLUNITRAZEPAM
     Dosage: 2 MG
     Route: 051
     Dates: start: 20151025
  19. DIGOSIN [Concomitant]
     Active Substance: DIGOXIN
     Dosage: 0.25 MG
     Route: 051
     Dates: start: 20151026
  20. MORIPRON-F [Concomitant]
     Dosage: 200 ML
     Route: 051
     Dates: start: 20151027

REACTIONS (1)
  - Pneumonia [Not Recovered/Not Resolved]

NARRATIVE: CASE EVENT DATE: 20151102
